FAERS Safety Report 8832067 (Version 1)
Quarter: 2012Q4

REPORT INFORMATION
  Report Type: 
  Country: CO (occurrence: CO)
  Receive Date: 20121009
  Receipt Date: 20121009
  Transmission Date: 20130627
  Serious: Yes (Other)
  Sender: FDA-Public Use
  Company Number: CO-JNJFOC-20121003753

PATIENT
  Sex: Female

DRUGS (1)
  1. RISPERDAL CONSTA [Suspect]
     Indication: BIPOLAR DISORDER
     Route: 030
     Dates: start: 20090801

REACTIONS (1)
  - Breast neoplasm [Not Recovered/Not Resolved]
